FAERS Safety Report 23191411 (Version 1)
Quarter: 2023Q4

REPORT INFORMATION
  Report Type: Spontaneous
  Country: US (occurrence: US)
  Receive Date: 20231116
  Receipt Date: 20231116
  Transmission Date: 20240110
  Serious: Yes (Hospitalization, Other)
  Sender: FDA-Public Use
  Company Number: US-AMGEN-USASP2023201202

PATIENT
  Age: 10 Year
  Sex: Female

DRUGS (5)
  1. PROLIA [Suspect]
     Active Substance: DENOSUMAB
     Indication: Aneurysmal bone cyst
     Dosage: 60 MILLIGRAM, QWK (FOR 4 DOSES)
     Route: 065
  2. PROLIA [Suspect]
     Active Substance: DENOSUMAB
     Indication: Off label use
     Dosage: 60 MILLIGRAM, Q4WK (FOR 12 DOSES)
     Route: 065
  3. PROLIA [Suspect]
     Active Substance: DENOSUMAB
     Dosage: 60 MILLIGRAM, Q8WK (FOR 6 DOSES)
     Route: 065
  4. CALCIUM CARBONATE [Concomitant]
     Active Substance: CALCIUM CARBONATE
     Indication: Prophylaxis
     Dosage: 24 MILLIGRAM PER KILOGRAM, QD
  5. CHOLECALCIFEROL [Concomitant]
     Active Substance: CHOLECALCIFEROL
     Indication: Prophylaxis
     Dosage: 1000 IU, QD

REACTIONS (13)
  - Hypercalcaemia [Recovered/Resolved]
  - Hyperphosphataemia [Unknown]
  - Acute kidney injury [Unknown]
  - Rebound effect [Unknown]
  - Blood 25-hydroxycholecalciferol decreased [Unknown]
  - Tachycardia [Unknown]
  - Blood parathyroid hormone decreased [Unknown]
  - Diarrhoea [Unknown]
  - Blood pressure increased [Unknown]
  - Fatigue [Unknown]
  - Off label use [Unknown]
  - Hypertension [Unknown]
  - Hypocalcaemia [Recovered/Resolved]
